FAERS Safety Report 5754711-6 (Version None)
Quarter: 2008Q2

REPORT INFORMATION
  Report Type: 
  Country: None (occurrence: None)
  Receive Date: 20080530
  Receipt Date: 20080521
  Transmission Date: 20081010
  Serious: Yes (Other)
  Sender: FDA-Public Use
  Company Number: US-PFIZER INC-2008044322

PATIENT
  Sex: Female

DRUGS (1)
  1. ARTHROTEC [Suspect]
     Indication: TEMPOROMANDIBULAR JOINT SYNDROME

REACTIONS (2)
  - CONDITION AGGRAVATED [None]
  - LICHEN PLANUS [None]
